FAERS Safety Report 8807821 (Version 2)
Quarter: 2012Q4

REPORT INFORMATION
  Report Type: 
  Country: JP (occurrence: JP)
  Receive Date: 20120925
  Receipt Date: 20121023
  Transmission Date: 20130627
  Serious: Yes (Other)
  Sender: FDA-Public Use
  Company Number: JP-AMGEN-JPNSP2012060247

PATIENT
  Age: 63 Year
  Sex: Male
  Weight: 62 kg

DRUGS (3)
  1. RANMARK [Suspect]
     Indication: METASTASES TO BONE
     Dosage: 120 mg, qd
     Route: 058
     Dates: start: 20120905
  2. TAXOTERE [Concomitant]
     Indication: PROSTATE CANCER
     Dosage: 100 mg, qd
     Route: 041
     Dates: start: 20120905, end: 20120905
  3. DECADRON [Concomitant]
     Indication: PROSTATE CANCER
     Route: 041
     Dates: start: 20120905, end: 20120905

REACTIONS (1)
  - Hypocalcaemia [Recovered/Resolved]
